FAERS Safety Report 16841996 (Version 2)
Quarter: 2019Q4

REPORT INFORMATION
  Report Type: Spontaneous
  Country: US (occurrence: US)
  Receive Date: 20190923
  Receipt Date: 20191001
  Transmission Date: 20200122
  Serious: No
  Sender: FDA-Public Use
  Company Number: US-MTPC-MTDA2019-0072025

PATIENT

DRUGS (2)
  1. RADICAVA [Suspect]
     Active Substance: EDARAVONE
     Indication: AMYOTROPHIC LATERAL SCLEROSIS
     Dosage: 60 MG OVER 60 MIN DAILY FOR 14 DAYS FOLLOWED BY A 2-WEEK DRUG FREE PERIOD
     Route: 042
     Dates: start: 20190803
  2. RADICAVA [Suspect]
     Active Substance: EDARAVONE
     Dosage: 60 MG OVER 60 MIN DAILY FOR 10 DAYS WITHIN A 14 DAY-PERIOD FOLLOWED BY A 2-WEEK DRUG FREE PERIOD
     Route: 042

REACTIONS (3)
  - Abdominal discomfort [Unknown]
  - Fatigue [Not Recovered/Not Resolved]
  - Inappropriate schedule of product administration [Unknown]
